FAERS Safety Report 9109828 (Version 2)
Quarter: 2013Q2

REPORT INFORMATION
  Report Type: Report from Study
  Country: US (occurrence: US)
  Receive Date: 20130222
  Receipt Date: 20130517
  Transmission Date: 20140414
  Serious: Yes (Hospitalization)
  Sender: FDA-Public Use
  Company Number: US-ABBOTT-13P-163-1051702-00

PATIENT
  Age: 21 Year
  Sex: Male
  Weight: 62.2 kg

DRUGS (2)
  1. HUMIRA [Suspect]
     Indication: CROHN^S DISEASE
     Dates: start: 201202, end: 20121231
  2. VANCOMYCIN [Suspect]
     Indication: PRODUCT USED FOR UNKNOWN INDICATION

REACTIONS (16)
  - Renal disorder [Unknown]
  - Crohn^s disease [Not Recovered/Not Resolved]
  - Abdominal pain [Recovering/Resolving]
  - Nausea [Recovering/Resolving]
  - Diarrhoea [Recovered/Resolved]
  - Crohn^s disease [Not Recovered/Not Resolved]
  - Vomiting [Recovering/Resolving]
  - Abscess [Recovering/Resolving]
  - Weight decreased [Unknown]
  - Photosensitivity reaction [Not Recovered/Not Resolved]
  - Pulmonary mass [Not Recovered/Not Resolved]
  - Intestinal fistula [Unknown]
  - Gastropleural fistula [Unknown]
  - Enterovesical fistula [Unknown]
  - Inflammation [Unknown]
  - Renal disorder [Unknown]
